FAERS Safety Report 5245627-2 (Version None)
Quarter: 2007Q1

REPORT INFORMATION
  Report Type: 
  Country: None (occurrence: None)
  Receive Date: 20070223
  Receipt Date: 20070212
  Transmission Date: 20070707
  Serious: Yes (Other)
  Sender: FDA-Public Use
  Company Number: US-PFIZER INC-2007011971

PATIENT
  Sex: Female
  Weight: 59 kg

DRUGS (2)
  1. XALATAN [Suspect]
     Indication: GLAUCOMA
  2. TIMOLOL MALEATE [Concomitant]

REACTIONS (7)
  - CATARACT [None]
  - CONJUNCTIVITIS [None]
  - EYE PRURITUS [None]
  - EYELASH DISCOLOURATION [None]
  - INTRAOCULAR PRESSURE INCREASED [None]
  - MADAROSIS [None]
  - MYOPIA [None]
